FAERS Safety Report 5557151-8 (Version None)
Quarter: 2007Q4

REPORT INFORMATION
  Report Type: 
  Country: None (occurrence: None)
  Receive Date: 20071214
  Receipt Date: 20071203
  Transmission Date: 20080405
  Serious: Yes (Other)
  Sender: FDA-Public Use
  Company Number: GB-JNJFOC-20061004812

PATIENT
  Sex: Female

DRUGS (3)
  1. VERMOX [Suspect]
     Route: 048
  2. VERMOX [Suspect]
     Indication: ENTEROBIASIS
     Route: 048
  3. CLOTRIMAZOLE [Concomitant]
     Route: 065

REACTIONS (2)
  - DRUG EXPOSURE DURING PREGNANCY [None]
  - INTRA-UTERINE DEATH [None]
